FAERS Safety Report 4701624-4 (Version None)
Quarter: 2005Q2

REPORT INFORMATION
  Report Type: 
  Country: None (occurrence: None)
  Receive Date: 20050627
  Receipt Date: 20050616
  Transmission Date: 20051028
  Serious: Yes (Life-Threatening, Hospitalization)
  Sender: FDA-Public Use
  Company Number: 2005089523

PATIENT
  Age: 70 Year
  Sex: Male
  Weight: 105 kg

DRUGS (4)
  1. ACCUPRIL [Suspect]
     Indication: HYPERTENSION
     Dosage: 10 MG (10 MG, DAILY), ORAL
     Route: 048
     Dates: start: 20041231, end: 20041231
  2. AMLODIPINE [Concomitant]
  3. TRIMETAZIDINE DIHYDROCHLORIDE (TRIMETAZIDINE HYDROCHLOROTHIAZIDE) [Concomitant]
  4. SOTALOL HCL [Concomitant]

REACTIONS (4)
  - BRONCHOSPASM [None]
  - DYSPNOEA [None]
  - RASH [None]
  - SWELLING FACE [None]
